FAERS Safety Report 13532900 (Version 1)
Quarter: 2017Q2

REPORT INFORMATION
  Report Type: Spontaneous
  Country: US (occurrence: US)
  Receive Date: 20170510
  Receipt Date: 20170510
  Transmission Date: 20170830
  Serious: No
  Sender: FDA-Public Use
  Company Number: US-PERRIGO-16US018632

PATIENT
  Age: 48 Year
  Sex: Female
  Weight: 72.56 kg

DRUGS (6)
  1. MICONAZOLE 3 COMBINATION PACK [Suspect]
     Active Substance: MICONAZOLE NITRATE
     Indication: VULVOVAGINAL PRURITUS
     Dosage: 200 MG, SINGLE AT NIGHT
     Route: 067
     Dates: start: 20160727, end: 20160727
  2. MICONAZOLE 3 COMBINATION PACK [Suspect]
     Active Substance: MICONAZOLE NITRATE
     Indication: VAGINAL DISCHARGE
  3. MICONAZOLE 3 COMBINATION PACK [Suspect]
     Active Substance: MICONAZOLE NITRATE
     Indication: VULVOVAGINAL MYCOTIC INFECTION
  4. CLARITIN [Concomitant]
     Active Substance: LORATADINE
     Indication: PERENNIAL ALLERGY
     Dosage: UNKNOWN, QD
     Route: 048
     Dates: start: 2015
  5. VITAMINS NOS [Concomitant]
     Active Substance: VITAMINS
     Indication: SUPPLEMENTATION THERAPY
     Dosage: UNK
     Route: 048
  6. CLARITIN [Concomitant]
     Active Substance: LORATADINE
     Indication: SEASONAL ALLERGY

REACTIONS (1)
  - Vulvovaginal burning sensation [Recovering/Resolving]

NARRATIVE: CASE EVENT DATE: 20160727
